FAERS Safety Report 4710026-6 (Version None)
Quarter: 2005Q3

REPORT INFORMATION
  Report Type: 
  Country: None (occurrence: None)
  Receive Date: 20050708
  Receipt Date: 20050621
  Transmission Date: 20060218
  Serious: Yes (Other)
  Sender: FDA-Public Use
  Company Number: PHEH2005US07035

PATIENT
  Age: 87 Year
  Sex: Female

DRUGS (11)
  1. ZOMETA [Suspect]
     Indication: MULTIPLE MYELOMA
     Dosage: 4MG Q4WK
     Dates: start: 20040121, end: 20050510
  2. ALKERAN [Concomitant]
     Dosage: 6 MG, UNK
  3. DEXAMETHASONE [Concomitant]
     Dosage: 20 MG, UNK
  4. ARANESP [Concomitant]
  5. ASPIRIN [Concomitant]
  6. PLAVIX [Concomitant]
  7. AVANDIA [Concomitant]
  8. INSULIN [Concomitant]
  9. LASIX [Concomitant]
  10. TOPROL-XL [Concomitant]
  11. PRAVACHOL [Concomitant]

REACTIONS (1)
  - ASEPTIC NECROSIS BONE [None]
